FAERS Safety Report 7240761-X (Version None)
Quarter: 2011Q1

REPORT INFORMATION
  Report Type: 
  Country: None (occurrence: None)
  Receive Date: 20110124
  Receipt Date: 20101013
  Transmission Date: 20110831
  Serious: No
  Sender: FDA-Public Use
  Company Number: US-BAYER-201022601BCC

PATIENT
  Sex: Male
  Weight: 97.727 kg

DRUGS (4)
  1. PRILOSEC [Concomitant]
  2. LIPITOR [Concomitant]
  3. ALEVE [Suspect]
     Indication: ARTHRALGIA
     Dosage: 2 DF, BID
     Route: 048
  4. ASPIRIN [Concomitant]

REACTIONS (1)
  - NO ADVERSE EVENT [None]
